FAERS Safety Report 11839279 (Version 1)
Quarter: 2015Q4

REPORT INFORMATION
  Report Type: Spontaneous
  Country: US (occurrence: US)
  Receive Date: 20151216
  Receipt Date: 20151216
  Transmission Date: 20160305
  Serious: No
  Sender: FDA-Public Use
  Company Number: US-TEVA-602285USA

PATIENT
  Age: 70 Year
  Sex: Male

DRUGS (2)
  1. OXYBUTYNIN [Suspect]
     Active Substance: OXYBUTYNIN
     Indication: PRODUCT USED FOR UNKNOWN INDICATION
     Route: 065
  2. MYRBETRIQ [Suspect]
     Active Substance: MIRABEGRON
     Indication: PRODUCT USED FOR UNKNOWN INDICATION
     Dosage: 25 MILLIGRAM DAILY;
     Dates: start: 20150811

REACTIONS (3)
  - Rash pruritic [Unknown]
  - Skin burning sensation [Unknown]
  - Arthropod bite [Unknown]

NARRATIVE: CASE EVENT DATE: 201508
